FAERS Safety Report 5787393-8 (Version None)
Quarter: 2008Q2

REPORT INFORMATION
  Report Type: 
  Country: None (occurrence: None)
  Receive Date: 20080623
  Receipt Date: 20080623
  Transmission Date: 20081010
  Serious: Yes (Hospitalization)
  Sender: FDA-Public Use
  Company Number: None

PATIENT
  Age: 70 Year
  Sex: Male
  Weight: 115.9 kg

DRUGS (16)
  1. VANCOMYCIN [Suspect]
     Indication: BLOOD CREATINE PHOSPHOKINASE INCREASED
     Dosage: 1750 MG Q24H IV BOLUS
     Route: 040
     Dates: start: 20071203, end: 20071204
  2. VANCOMYCIN [Suspect]
     Indication: LEUKOCYTOSIS
     Dosage: 1750 MG Q24H IV BOLUS
     Route: 040
     Dates: start: 20071203, end: 20071204
  3. VANCOMYCIN [Suspect]
     Indication: POST PROCEDURAL COMPLICATION
     Dosage: 1750 MG Q24H IV BOLUS
     Route: 040
     Dates: start: 20071203, end: 20071204
  4. VANCOMYCIN [Suspect]
     Indication: STAPHYLOCOCCAL INFECTION
     Dosage: 1750 MG Q24H IV BOLUS
     Route: 040
     Dates: start: 20071203, end: 20071204
  5. ZOSYN [Suspect]
     Indication: LEUKOCYTOSIS
     Dosage: 4.5 GM Q6H IV BOLUS
     Route: 040
     Dates: start: 20071203, end: 20071205
  6. ZOSYN [Suspect]
     Indication: POST PROCEDURAL COMPLICATION
     Dosage: 4.5 GM Q6H IV BOLUS
     Route: 040
     Dates: start: 20071203, end: 20071205
  7. DALTEPARIN SODIUM [Concomitant]
  8. FLUCONAZOLE [Concomitant]
  9. FUROSEMIDE [Concomitant]
  10. LANSOPRAZOLE [Concomitant]
  11. LEVALBUTEROLOL [Concomitant]
  12. LINEZOLID [Concomitant]
  13. LISINOPRIL [Concomitant]
  14. MEROPENEM [Concomitant]
  15. METOPROLOL SUCCINATE [Concomitant]
  16. METRONIDAZOLE HCL [Concomitant]

REACTIONS (1)
  - NEPHROPATHY TOXIC [None]
